FAERS Safety Report 6069362-6 (Version None)
Quarter: 2009Q1

REPORT INFORMATION
  Report Type: 
  Country: None (occurrence: None)
  Receive Date: 20090206
  Receipt Date: 20080602
  Transmission Date: 20090719
  Serious: Yes (Death, Other)
  Sender: FDA-Public Use
  Company Number: FR-PFIZER INC-2008021864

PATIENT

DRUGS (1)
  1. SUTENT [Suspect]
     Indication: THYROID CANCER METASTATIC
     Dates: start: 20080207

REACTIONS (6)
  - BONE PAIN [None]
  - DISEASE PROGRESSION [None]
  - GASTROINTESTINAL PERFORATION [None]
  - GENERAL PHYSICAL HEALTH DETERIORATION [None]
  - MUCOUS MEMBRANE DISORDER [None]
  - THYROID CANCER METASTATIC [None]
